FAERS Safety Report 12988628 (Version 2)
Quarter: 2016Q4

REPORT INFORMATION
  Report Type: Report from Study
  Country: None (occurrence: IL)
  Receive Date: 20161130
  Receipt Date: 20161213
  Transmission Date: 20170207
  Serious: Yes (Life-Threatening, Hospitalization, Disabling, Other)
  Sender: FDA-Public Use
  Company Number: IL-ABBVIE-16P-082-1714016-00

PATIENT
  Age: 66 Year
  Sex: Male
  Weight: 63 kg

DRUGS (16)
  1. LIPITOR TAB [Concomitant]
     Indication: PRODUCT USED FOR UNKNOWN INDICATION
     Route: 048
  2. DUODOPA [Suspect]
     Active Substance: CARBIDOPA\LEVODOPA
     Dosage: MD 12.5ML, CD 4ML, ED 2ML---16HOURS PLUS 4 TIMES DAILY ED.
     Route: 050
     Dates: start: 20160831
  3. OMEPRADEX CAPLET [Concomitant]
     Indication: PRODUCT USED FOR UNKNOWN INDICATION
     Route: 048
  4. MOTILIUM [Concomitant]
     Active Substance: DOMPERIDONE
     Indication: PARKINSON^S DISEASE
     Route: 048
  5. LEVODOPA [Concomitant]
     Active Substance: LEVODOPA
     Indication: PARKINSON^S DISEASE
     Route: 048
  6. LIPIDOSTEROLIC EXTRACT OF SERENO [Concomitant]
     Indication: PRODUCT USED FOR UNKNOWN INDICATION
     Route: 048
  7. DUODOPA [Suspect]
     Active Substance: CARBIDOPA\LEVODOPA
     Indication: PARKINSON^S DISEASE
     Dosage: MD 12.5ML, CD 4ML, ED 2ML---16HOURS PLUS 4 TIMES DAILY ED.
     Route: 050
     Dates: start: 20160801, end: 20160829
  8. REQUIP MODUTAB [Concomitant]
     Indication: PARKINSON^S DISEASE
     Dosage: MORNING
     Route: 048
  9. AMANTADINE SULFATE [Concomitant]
     Active Substance: AMANTADINE SULFATE
     Indication: PARKINSON^S DISEASE
     Route: 048
  10. SINEMET RETARD [Concomitant]
     Indication: PARKINSON^S DISEASE
     Dosage: 50/200 TABS
  11. TAMSULINE [Concomitant]
     Indication: PRODUCT USED FOR UNKNOWN INDICATION
     Route: 048
  12. LEVODOPA/CARBIDOPA [Concomitant]
     Active Substance: CARBIDOPA\LEVODOPA
     Indication: PRODUCT USED FOR UNKNOWN INDICATION
  13. OMNIC [Concomitant]
     Active Substance: TAMSULOSIN HYDROCHLORIDE
     Indication: PRODUCT USED FOR UNKNOWN INDICATION
     Route: 048
  14. CARBIDOPA. [Concomitant]
     Active Substance: CARBIDOPA
     Indication: PARKINSON^S DISEASE
     Route: 048
  15. ESOMEPRAZOLE [Concomitant]
     Active Substance: ESOMEPRAZOLE
     Indication: PRODUCT USED FOR UNKNOWN INDICATION
  16. DEKINET [Concomitant]
     Indication: PARKINSON^S DISEASE
     Route: 048

REACTIONS (11)
  - Stoma site discharge [Unknown]
  - Surgery [Not Recovered/Not Resolved]
  - Peritonitis [Not Recovered/Not Resolved]
  - Tremor [Unknown]
  - Stoma site infection [Unknown]
  - Constipation [Not Recovered/Not Resolved]
  - Intestinal obstruction [Not Recovered/Not Resolved]
  - Oedema peripheral [Unknown]
  - Stoma site discharge [Unknown]
  - Suture related complication [Unknown]
  - Intra-abdominal fluid collection [Unknown]

NARRATIVE: CASE EVENT DATE: 20160827
